FAERS Safety Report 16802864 (Version 2)
Quarter: 2019Q3

REPORT INFORMATION
  Report Type: Spontaneous
  Country: JP (occurrence: JP)
  Receive Date: 20190913
  Receipt Date: 20190913
  Transmission Date: 20191005
  Serious: Yes (Other)
  Sender: FDA-Public Use
  Company Number: PHJP2019JP011791

PATIENT
  Age: 4 Year
  Sex: Female

DRUGS (16)
  1. FLUDARA [Concomitant]
     Active Substance: FLUDARABINE PHOSPHATE
     Indication: PRODUCT USED FOR UNKNOWN INDICATION
     Dosage: 120 MG/M2, UNK
     Route: 065
  2. TACROLIMUS. [Concomitant]
     Active Substance: TACROLIMUS
     Indication: PROPHYLAXIS AGAINST GRAFT VERSUS HOST DISEASE
     Dosage: UNK
     Route: 065
  3. ETOPOSIDE. [Concomitant]
     Active Substance: ETOPOSIDE
     Dosage: 150 MG/M2, UNK
     Route: 065
  4. METHOTREXATE. [Concomitant]
     Active Substance: METHOTREXATE
     Indication: PROPHYLAXIS AGAINST GRAFT VERSUS HOST DISEASE
     Dosage: 10 MG/M2, UNK,DAY1
     Route: 065
  5. METHOTREXATE. [Concomitant]
     Active Substance: METHOTREXATE
     Dosage: 7 MG/M2, DAY 3 AND 6
     Route: 065
  6. BUSULFEX [Concomitant]
     Active Substance: BUSULFAN
     Indication: PRODUCT USED FOR UNKNOWN INDICATION
     Dosage: 17 MG/KG, UNK
     Route: 065
  7. ALKERAN [Concomitant]
     Active Substance: MELPHALAN
     Indication: PRODUCT USED FOR UNKNOWN INDICATION
     Dosage: 180 MG/M2, UNK
     Route: 065
  8. CICLOSPORIN [Suspect]
     Active Substance: CYCLOSPORINE
     Indication: PROPHYLAXIS AGAINST GRAFT VERSUS HOST DISEASE
  9. CICLOSPORIN [Suspect]
     Active Substance: CYCLOSPORINE
     Indication: IMMUNOSUPPRESSANT DRUG THERAPY
  10. CICLOSPORIN [Suspect]
     Active Substance: CYCLOSPORINE
     Indication: AUTOIMMUNE LYMPHOPROLIFERATIVE SYNDROME
     Dosage: UNK
     Route: 065
  11. CICLOSPORIN [Suspect]
     Active Substance: CYCLOSPORINE
     Indication: STEM CELL TRANSPLANT
  12. ETOPOSIDE. [Concomitant]
     Active Substance: ETOPOSIDE
     Indication: PRODUCT USED FOR UNKNOWN INDICATION
     Dosage: 70 MG/M2, UNK,DAY-15
     Route: 065
  13. ONCOVIN [Concomitant]
     Active Substance: VINCRISTINE SULFATE
     Indication: PRODUCT USED FOR UNKNOWN INDICATION
     Dosage: 1.5 MG/M2, UNK, DAY-26 AND ON DAY -47
     Route: 065
  14. LEUKERIN [Concomitant]
     Active Substance: MERCAPTOPURINE
     Indication: AUTOIMMUNE LYMPHOPROLIFERATIVE SYNDROME
     Dosage: UNK
     Route: 065
  15. LEUKERIN [Concomitant]
     Active Substance: MERCAPTOPURINE
     Indication: IMMUNOSUPPRESSANT DRUG THERAPY
  16. ENDOXAN [Concomitant]
     Active Substance: CYCLOPHOSPHAMIDE
     Indication: PRODUCT USED FOR UNKNOWN INDICATION
     Dosage: 500 MG/M2, UNK
     Route: 065

REACTIONS (8)
  - Product use in unapproved indication [Unknown]
  - Chronic graft versus host disease [Unknown]
  - Stomatitis [Unknown]
  - Diarrhoea [Unknown]
  - Inflammatory bowel disease [Unknown]
  - Graft versus host disease in gastrointestinal tract [Unknown]
  - Abdominal pain [Unknown]
  - Anal abscess [Unknown]
